FAERS Safety Report 14054368 (Version 1)
Quarter: 2017Q4

REPORT INFORMATION
  Report Type: Spontaneous
  Country: US (occurrence: US)
  Receive Date: 20171006
  Receipt Date: 20171006
  Transmission Date: 20180321
  Serious: No
  Sender: FDA-Public Use
  Company Number: US-JNJFOC-20170827814

PATIENT
  Age: 61 Year
  Sex: Female
  Weight: 59.88 kg

DRUGS (4)
  1. WOMENS ROGAINE UNSCENTED [Suspect]
     Active Substance: MINOXIDIL
     Route: 061
  2. WOMENS ROGAINE UNSCENTED [Suspect]
     Active Substance: MINOXIDIL
     Indication: ALOPECIA
     Dosage: ABOUT 1/2 CAPFUL, SOMETIMES MORE OR LESS
     Route: 061
     Dates: end: 20170829
  3. PAXIL [Concomitant]
     Active Substance: PAROXETINE HYDROCHLORIDE
     Indication: DEPRESSION
     Dosage: YEARS
     Route: 065
  4. ESTROGEN [Concomitant]
     Active Substance: ESTROGENS
     Indication: BLOOD OESTROGEN INCREASED
     Route: 065

REACTIONS (4)
  - Underdose [Unknown]
  - Pruritus [Not Recovered/Not Resolved]
  - Overdose [Unknown]
  - Skin exfoliation [Not Recovered/Not Resolved]
